FAERS Safety Report 10553768 (Version 2)
Quarter: 2014Q4

REPORT INFORMATION
  Report Type: Spontaneous
  Country: CA (occurrence: CA)
  Receive Date: 20141030
  Receipt Date: 20141030
  Transmission Date: 20150529
  Serious: Yes (Other)
  Sender: FDA-Public Use
  Company Number: CA-JNJFOC-20130619535

PATIENT
  Sex: Male

DRUGS (1)
  1. ABIRATERONE ACETATE [Suspect]
     Active Substance: ABIRATERONE ACETATE
     Indication: PROSTATE CANCER METASTATIC
     Route: 048

REACTIONS (17)
  - Anaemia [Unknown]
  - Neutropenia [Unknown]
  - Constipation [Unknown]
  - Diarrhoea [Unknown]
  - Adverse event [Unknown]
  - Fatigue [Unknown]
  - Hypertension [Unknown]
  - Hypokalaemia [Unknown]
  - Hypercholesterolaemia [Unknown]
  - Vomiting [Unknown]
  - Dyspnoea [Unknown]
  - Prostate cancer metastatic [Unknown]
  - Alanine aminotransferase increased [Unknown]
  - Nausea [Unknown]
  - Thrombocytopenia [Unknown]
  - Aspartate aminotransferase increased [Unknown]
  - Oedema peripheral [Unknown]
